APPROVED DRUG PRODUCT: VARDENAFIL HYDROCHLORIDE
Active Ingredient: VARDENAFIL HYDROCHLORIDE
Strength: 10MG
Dosage Form/Route: TABLET, ORALLY DISINTEGRATING;ORAL
Application: A205988 | Product #001 | TE Code: AB
Applicant: MACLEODS PHARMACEUTICALS LTD
Approved: Mar 10, 2020 | RLD: No | RS: No | Type: RX